FAERS Safety Report 20775798 (Version 1)
Quarter: 2022Q2

REPORT INFORMATION
  Report Type: Spontaneous
  Country: US (occurrence: US)
  Receive Date: 20220502
  Receipt Date: 20220502
  Transmission Date: 20220721
  Serious: No
  Sender: FDA-Public Use
  Company Number: US-PFIZER INC-202101074126

PATIENT
  Age: 68 Year
  Weight: 69.85 kg

DRUGS (1)
  1. PRISTIQ EXTENDED-RELEASE [Suspect]
     Active Substance: DESVENLAFAXINE SUCCINATE
     Indication: Anxiety
     Dosage: 100 MG, 1X/DAY

REACTIONS (10)
  - Product dispensing error [Unknown]
  - Product label issue [Unknown]
  - Agitation [Unknown]
  - Insomnia [Unknown]
  - Fatigue [Unknown]
  - Ligament sprain [Unknown]
  - Dry mouth [Unknown]
  - Pain [Recovered/Resolved]
  - Anxiety [Recovering/Resolving]
  - Nasopharyngitis [Unknown]

NARRATIVE: CASE EVENT DATE: 20210820
